FAERS Safety Report 5320809-X (Version None)
Quarter: 2007Q2

REPORT INFORMATION
  Report Type: 
  Country: None (occurrence: None)
  Receive Date: 20070502
  Receipt Date: 20070418
  Transmission Date: 20071010
  Serious: Yes (Other)
  Sender: FDA-Public Use
  Company Number: ENC200700047

PATIENT
  Age: 74 Year
  Sex: Female
  Weight: 82.1 kg

DRUGS (24)
  1. ARGATROBAN [Suspect]
     Indication: HEPARIN-INDUCED THROMBOCYTOPENIA
     Dosage: 2 MCG/KG/MIN, CONTINUOUS, INTRAVENOUS; 0.5 MCG/KG/MIN, CONTINUOUS, INTRAVENOUS ; 1 MCG/KG/MIN, CONTI
     Route: 042
     Dates: start: 20070328, end: 20070328
  2. ARGATROBAN [Suspect]
     Indication: HEPARIN-INDUCED THROMBOCYTOPENIA
     Dosage: 2 MCG/KG/MIN, CONTINUOUS, INTRAVENOUS; 0.5 MCG/KG/MIN, CONTINUOUS, INTRAVENOUS ; 1 MCG/KG/MIN, CONTI
     Route: 042
     Dates: start: 20070328, end: 20070328
  3. ARGATROBAN [Suspect]
     Indication: HEPARIN-INDUCED THROMBOCYTOPENIA
     Dosage: 2 MCG/KG/MIN, CONTINUOUS, INTRAVENOUS; 0.5 MCG/KG/MIN, CONTINUOUS, INTRAVENOUS ; 1 MCG/KG/MIN, CONTI
     Route: 042
     Dates: start: 20070330, end: 20070330
  4. ARGATROBAN [Suspect]
     Indication: HEPARIN-INDUCED THROMBOCYTOPENIA
     Dosage: 2 MCG/KG/MIN, CONTINUOUS, INTRAVENOUS; 0.5 MCG/KG/MIN, CONTINUOUS, INTRAVENOUS ; 1 MCG/KG/MIN, CONTI
     Route: 042
     Dates: start: 20070330, end: 20070401
  5. ARGATROBAN [Suspect]
     Indication: HEPARIN-INDUCED THROMBOCYTOPENIA
     Dosage: 2 MCG/KG/MIN, CONTINUOUS, INTRAVENOUS; 0.5 MCG/KG/MIN, CONTINUOUS, INTRAVENOUS ; 1 MCG/KG/MIN, CONTI
     Route: 042
     Dates: start: 20070401, end: 20070401
  6. ARGATROBAN [Suspect]
     Indication: HEPARIN-INDUCED THROMBOCYTOPENIA
     Dosage: 2 MCG/KG/MIN, CONTINUOUS, INTRAVENOUS; 0.5 MCG/KG/MIN, CONTINUOUS, INTRAVENOUS ; 1 MCG/KG/MIN, CONTI
     Route: 042
     Dates: start: 20070401, end: 20070404
  7. COUMADIN [Concomitant]
  8. ALTACE [Concomitant]
  9. PROTONIX [Concomitant]
  10. COSOPT [Concomitant]
  11. DARVOCET [Concomitant]
  12. DURAGESIC-100 [Concomitant]
  13. MORPHINE [Concomitant]
  14. LOVENOX [Concomitant]
  15. DULCOLAX [Concomitant]
  16. HYDROCODONE (HYDROCODONE) [Concomitant]
  17. DILAUDID [Concomitant]
  18. LOPRESSOR [Concomitant]
  19. ZOFRAN [Concomitant]
  20. POTASSIUM CHLORIDE [Concomitant]
  21. TYLENOL [Concomitant]
  22. BENADRYL (DIPHENHYDRAMINDE HYDROCHLORIDE) [Concomitant]
  23. ERYTHROMYCIN [Concomitant]
  24. INSULIN (INSULIN) [Concomitant]

REACTIONS (8)
  - ACTIVATED PARTIAL THROMBOPLASTIN TIME PROLONGED [None]
  - ATRIAL TACHYCARDIA [None]
  - BLOOD ALKALINE PHOSPHATASE ABNORMAL [None]
  - GASTROINTESTINAL HAEMORRHAGE [None]
  - HAEMATOCRIT DECREASED [None]
  - HAEMOGLOBIN DECREASED [None]
  - INTERNATIONAL NORMALISED RATIO INCREASED [None]
  - NODAL RHYTHM [None]
